FAERS Safety Report 22203820 (Version 1)
Quarter: 2023Q2

REPORT INFORMATION
  Report Type: Spontaneous
  Country: US (occurrence: US)
  Receive Date: 20230412
  Receipt Date: 20230412
  Transmission Date: 20230721
  Serious: No
  Sender: FDA-Public Use
  Company Number: US-BAUSCHBL-2023BNL002911

PATIENT
  Sex: Female

DRUGS (4)
  1. ALAWAY [Suspect]
     Active Substance: KETOTIFEN FUMARATE
     Indication: Eye allergy
     Dosage: STARTED ABOUT 2 TO 3 YEARS, USED EVERY DAY, BUT NOW USING IT AS NEEDED AS PER DOCTOR ADVICE.
     Route: 047
  2. ALAWAY [Suspect]
     Active Substance: KETOTIFEN FUMARATE
     Indication: Dry eye
     Dosage: NOW USING IT AS NEEDED AS PER DOCTOR ADVICE
     Route: 047
  3. REFRESH TEARS [Concomitant]
     Active Substance: CARBOXYMETHYLCELLULOSE SODIUM
     Indication: Dry eye
  4. REFRESH TEARS [Concomitant]
     Active Substance: CARBOXYMETHYLCELLULOSE SODIUM
     Indication: Vision blurred

REACTIONS (2)
  - Application site acne [Recovering/Resolving]
  - Product prescribing issue [Unknown]

NARRATIVE: CASE EVENT DATE: 20230101
